FAERS Safety Report 11378727 (Version 1)
Quarter: 2015Q3

REPORT INFORMATION
  Report Type: Spontaneous
  Country: US (occurrence: US)
  Receive Date: 20150811
  Receipt Date: 20150811
  Transmission Date: 20151125
  Serious: No
  Sender: FDA-Public Use
  Company Number: US-ELI_LILLY_AND_COMPANY-US200903003788

PATIENT
  Age: 33 Year
  Sex: Male

DRUGS (2)
  1. HUMULIN N [Suspect]
     Active Substance: INSULIN HUMAN
     Dosage: UNK, UNK
     Dates: start: 1993
  2. HUMULIN R [Suspect]
     Active Substance: INSULIN HUMAN
     Dosage: UNK, AS NEEDED
     Dates: start: 1993

REACTIONS (3)
  - Blood glucose increased [Recovered/Resolved]
  - Hypersensitivity [Not Recovered/Not Resolved]
  - Product tampering [Recovered/Resolved]

NARRATIVE: CASE EVENT DATE: 2008
